FAERS Safety Report 5287841-6 (Version None)
Quarter: 2007Q2

REPORT INFORMATION
  Report Type: 
  Country: None (occurrence: None)
  Receive Date: 20070405
  Receipt Date: 20070322
  Transmission Date: 20071010
  Serious: Yes (Other)
  Sender: FDA-Public Use
  Company Number: PHNU2007DE01295

PATIENT
  Sex: Female

DRUGS (2)
  1. FEMARA [Suspect]
     Dosage: 2.5 MG, QD
     Route: 048
  2. CHEMOTHERAPEUTICS NOS [Concomitant]
     Dosage: HIGH-DOSE CHEMOTHERAPY
     Route: 065

REACTIONS (1)
  - POLYNEUROPATHY [None]
